FAERS Safety Report 16021892 (Version 1)
Quarter: 2019Q1

REPORT INFORMATION
  Report Type: Spontaneous
  Country: CA (occurrence: CA)
  Receive Date: 20190301
  Receipt Date: 20190301
  Transmission Date: 20190418
  Serious: Yes (Death, Other)
  Sender: FDA-Public Use
  Company Number: CA-AUROBINDO-AUR-APL-2019-010367

PATIENT

DRUGS (6)
  1. CEFPROZIL. [Suspect]
     Active Substance: CEFPROZIL
     Indication: ANTIBIOTIC PROPHYLAXIS
     Dosage: UNK, 2 EVERY 1 DAY
     Route: 065
  2. PNEUMOCOCCAL VACCINE POLYV [Suspect]
     Active Substance: PNEUMOCOCCAL VACCINE POLYVALENT
     Dosage: UNK, ONCE
     Route: 065
  3. PNEUMOVAX 23 [Suspect]
     Active Substance: PNEUMOCOCCAL VACCINE, POLYVALENT 23
     Indication: IMMUNISATION
     Dosage: UNK
     Route: 065
  4. DIMENHYDRINATE. [Concomitant]
     Active Substance: DIMENHYDRINATE
     Indication: IMMUNISATION
     Dosage: UNK, ONCE
     Route: 065
  5. PNEUMOCOCCAL VACCINE POLYV [Suspect]
     Active Substance: PNEUMOCOCCAL VACCINE POLYVALENT
     Indication: IMMUNISATION
     Dosage: UNK, ONCE
     Route: 065
  6. PNEUMOCOCCAL VACCINE POLYV [Suspect]
     Active Substance: PNEUMOCOCCAL VACCINE POLYVALENT
     Dosage: UNK, ONCE
     Route: 065

REACTIONS (3)
  - Drug resistance [Fatal]
  - Meningitis pneumococcal [Fatal]
  - Drug ineffective [Fatal]
